FAERS Safety Report 19235508 (Version 1)
Quarter: 2021Q2

REPORT INFORMATION
  Report Type: Report from Study
  Country: US (occurrence: US)
  Receive Date: 20210510
  Receipt Date: 20210510
  Transmission Date: 20210717
  Serious: Yes (Hospitalization, Other)
  Sender: FDA-Public Use
  Company Number: US-JNJFOC-20210501731

PATIENT
  Sex: Male

DRUGS (13)
  1. ENZALUTAMIDE [Suspect]
     Active Substance: ENZALUTAMIDE
     Indication: PROSTATE CANCER
     Route: 065
  2. NILUTAMIDE. [Suspect]
     Active Substance: NILUTAMIDE
     Indication: PROSTATE CANCER
     Route: 065
  3. BICALUTAMIDE. [Suspect]
     Active Substance: BICALUTAMIDE
     Indication: PROSTATE CANCER
     Route: 065
  4. GOSERELIN [Suspect]
     Active Substance: GOSERELIN
     Indication: PROSTATE CANCER
     Route: 065
  5. FLUTAMIDE. [Suspect]
     Active Substance: FLUTAMIDE
     Indication: PROSTATE CANCER
     Route: 065
  6. LEUPROLIDE [LEUPRORELIN] [Suspect]
     Active Substance: LEUPROLIDE ACETATE
     Indication: PROSTATE CANCER
     Route: 065
  7. BUSERELIN [Suspect]
     Active Substance: BUSERELIN
     Indication: PROSTATE CANCER
     Route: 065
  8. HISTRELIN [Suspect]
     Active Substance: HISTRELIN
     Indication: PROSTATE CANCER
     Route: 065
  9. APALUTAMIDE [Suspect]
     Active Substance: APALUTAMIDE
     Indication: PROSTATE CANCER
     Route: 048
  10. DEGARELIX [Suspect]
     Active Substance: DEGARELIX
     Indication: PROSTATE CANCER
     Route: 065
  11. DAROLUTAMIDE. [Suspect]
     Active Substance: DAROLUTAMIDE
     Indication: PROSTATE CANCER
     Route: 065
  12. ABIRATERONE ACETATE. [Suspect]
     Active Substance: ABIRATERONE ACETATE
     Indication: PROSTATE CANCER
     Route: 048
  13. TRIPTORELIN [Suspect]
     Active Substance: TRIPTORELIN

REACTIONS (10)
  - Myocardial infarction [Unknown]
  - Pulmonary embolism [Unknown]
  - Peripheral arterial occlusive disease [Unknown]
  - Atrial fibrillation [Unknown]
  - Electrocardiogram QT prolonged [Unknown]
  - Cardiac failure [Unknown]
  - Ischaemic stroke [Unknown]
  - Deep vein thrombosis [Unknown]
  - Coronary artery disease [Unknown]
  - Hypertension [Unknown]
